FAERS Safety Report 11784678 (Version 1)
Quarter: 2015Q4

REPORT INFORMATION
  Report Type: Spontaneous
  Country: US (occurrence: US)
  Receive Date: 20151130
  Receipt Date: 20151130
  Transmission Date: 20160305
  Serious: Yes (Other)
  Sender: FDA-Public Use
  Company Number: US-TEVA-613244ACC

PATIENT
  Age: 27 Year
  Sex: Female
  Weight: 61.29 kg

DRUGS (3)
  1. RETIN-A MICRO TOPICAL GEL [Concomitant]
     Indication: ACNE
  2. PARAGARD T 380A [Suspect]
     Active Substance: COPPER
     Indication: CONTRACEPTION
     Route: 015
     Dates: start: 20151006, end: 20151113
  3. ACANYA TOPICAL GEL [Concomitant]
     Indication: ACNE

REACTIONS (2)
  - Device dislocation [Recovered/Resolved]
  - Embedded device [Recovered/Resolved]

NARRATIVE: CASE EVENT DATE: 20151112
